FAERS Safety Report 6897024-1 (Version None)
Quarter: 2010Q3

REPORT INFORMATION
  Report Type: 
  Country: None (occurrence: None)
  Receive Date: 20100802
  Receipt Date: 20070309
  Transmission Date: 20110219
  Serious: No
  Sender: FDA-Public Use
  Company Number: US-PFIZER INC-2007020901

PATIENT
  Sex: Male
  Weight: 83.9 kg

DRUGS (3)
  1. LYRICA [Suspect]
     Indication: HYPOAESTHESIA
     Dates: start: 20070201, end: 20070309
  2. PROCARDIA [Concomitant]
     Indication: HYPERTENSION
     Dates: start: 19770101
  3. ZOCOR [Concomitant]
     Indication: BLOOD CHOLESTEROL INCREASED
     Dates: start: 20061001

REACTIONS (2)
  - FATIGUE [None]
  - PARAESTHESIA [None]
